FAERS Safety Report 7932288-4 (Version None)
Quarter: 2011Q4

REPORT INFORMATION
  Report Type: 
  Country: None (occurrence: None)
  Receive Date: 20111121
  Receipt Date: 20111114
  Transmission Date: 20120403
  Serious: Yes (Hospitalization)
  Sender: FDA-Public Use
  Company Number: US-B.I. PHARMACEUTICALS,INC./RIDGEFIELD-2011-EU-00367GD

PATIENT
  Age: 5 Year

DRUGS (3)
  1. CLONIDINE [Suspect]
     Route: 048
  2. CONCERTA [Suspect]
     Route: 048
  3. METHYLPHENIDATE [Suspect]
     Route: 048

REACTIONS (2)
  - LETHARGY [None]
  - HYPOTENSION [None]
